FAERS Safety Report 4973530-1 (Version None)
Quarter: 2006Q2

REPORT INFORMATION
  Report Type: 
  Country: None (occurrence: None)
  Receive Date: 20060407
  Receipt Date: 20060329
  Transmission Date: 20061013
  Serious: Yes (Other)
  Sender: FDA-Public Use
  Company Number: 2006-03-2026

PATIENT
  Age: 5 Year
  Sex: Male

DRUGS (1)
  1. AERIUS (DESLORATADINE) SYRUP [Suspect]
     Indication: SEASONAL ALLERGY
     Dosage: ORAL
     Route: 048
     Dates: start: 20050101

REACTIONS (1)
  - DIABETES MELLITUS INSULIN-DEPENDENT [None]
